FAERS Safety Report 20359970 (Version 1)
Quarter: 2022Q1

REPORT INFORMATION
  Report Type: Spontaneous
  Country: SG (occurrence: SG)
  Receive Date: 20220121
  Receipt Date: 20220121
  Transmission Date: 20220423
  Serious: Yes (Other)
  Sender: FDA-Public Use
  Company Number: SG-BAYER-2022A006755

PATIENT

DRUGS (1)
  1. EYLEA [Suspect]
     Active Substance: AFLIBERCEPT
     Indication: Product used for unknown indication
     Dosage: 40MG/ML,TOTAL DOSE AND LAST DOSE PRIOR EVENT WERE NOT REPORTED

REACTIONS (2)
  - Eye haemorrhage [Unknown]
  - Visual impairment [Unknown]
